FAERS Safety Report 8921973 (Version 1)
Quarter: 2012Q4

REPORT INFORMATION
  Report Type: Spontaneous
  Country: US (occurrence: None)
  Receive Date: 20121119
  Receipt Date: 20121119
  Transmission Date: 20130627
  Serious: Yes (Other)
  Sender: FDA-Public Use
  Company Number: None

PATIENT
  Age: 35 Year
  Sex: Female
  Weight: 103.87 kg

DRUGS (1)
  1. GARNIER BB CREAM [Suspect]
     Route: 061
     Dates: start: 20121112, end: 20121116

REACTIONS (1)
  - Dermatitis contact [None]
